FAERS Safety Report 9099039 (Version 1)
Quarter: 2013Q1

REPORT INFORMATION
  Report Type: Spontaneous
  Country: ES (occurrence: ES)
  Receive Date: 20130214
  Receipt Date: 20130214
  Transmission Date: 20140127
  Serious: Yes (Hospitalization)
  Sender: FDA-Public Use
  Company Number: ES-ELI_LILLY_AND_COMPANY-ES201302002321

PATIENT
  Age: 80 Year
  Sex: Female

DRUGS (2)
  1. FORSTEO [Suspect]
     Indication: OSTEOPOROSIS
     Dosage: 20 UG, QD
     Route: 058
     Dates: start: 201201, end: 20121110
  2. FORSTEO [Suspect]
     Dosage: 20 UG, QD
     Route: 058
     Dates: start: 20130205

REACTIONS (8)
  - Pulmonary oedema [Unknown]
  - Malaise [Unknown]
  - Nephrolithiasis [Unknown]
  - Ureteric obstruction [Unknown]
  - Dysuria [Unknown]
  - Tachycardia [Unknown]
  - Back pain [Unknown]
  - Renal colic [Unknown]
